FAERS Safety Report 19124979 (Version 1)
Quarter: 2021Q2

REPORT INFORMATION
  Report Type: Report from Study
  Country: ZA (occurrence: ZA)
  Receive Date: 20210413
  Receipt Date: 20210413
  Transmission Date: 20210717
  Serious: Yes (Death)
  Sender: FDA-Public Use
  Company Number: ZA-ASTRAZENECA-2021A284744

PATIENT
  Sex: Male

DRUGS (4)
  1. ALAPREN [Concomitant]
     Active Substance: ENALAPRIL MALEATE
  2. MYLAN FUROSEMIDE [Concomitant]
     Active Substance: FUROSEMIDE
  3. SYMBICORD TURBUHALER [Suspect]
     Active Substance: BUDESONIDE\FORMOTEROL FUMARATE DIHYDRATE
     Indication: ASTHMA
     Dosage: DAILY160UG/INHAL DAILY
     Route: 055
  4. SANDOZ THEOPHYLLINE [Concomitant]
     Active Substance: THEOPHYLLINE

REACTIONS (1)
  - Death [Fatal]
